FAERS Safety Report 9617772 (Version 1)
Quarter: 2013Q4

REPORT INFORMATION
  Report Type: Spontaneous
  Country: FR (occurrence: None)
  Receive Date: 20131009
  Receipt Date: 20131009
  Transmission Date: 20140711
  Serious: Yes (Hospitalization)
  Sender: FDA-Public Use
  Company Number: SYM-2013-11313

PATIENT
  Sex: Male

DRUGS (5)
  1. FLAGYL (METRONDIAZOLE) (METRONDIAZOLE) [Suspect]
     Indication: APPENDICITIS
     Route: 042
     Dates: start: 20130721, end: 20130725
  2. TOPALGIC (TRAMADOL HYDRCHLORIDE) (TRAMADOL HYDROCHLORIDE) [Suspect]
     Indication: APPENDICITIS
     Route: 048
     Dates: start: 20130721
  3. CEFOTAXIME (CEFOTAXIME) (CEFOTXIME) [Suspect]
     Indication: APPENDICITIS
     Route: 042
     Dates: start: 20130721, end: 20130725
  4. INEXIUM (ESOMEPRAZOLE MAGNESIUM) (ESOMEPRAZOLE MAGNESIUM) [Suspect]
     Indication: PRODUCT USED FOR UNKNOWN INDICATION
     Route: 048
     Dates: start: 20130721, end: 20130725
  5. LOVENOX (ENOXAPARIN SODIUM) (ENOXAPARIN SODIUM) [Concomitant]

REACTIONS (1)
  - Leukopenia [None]
